FAERS Safety Report 9696162 (Version 1)
Quarter: 2013Q4

REPORT INFORMATION
  Report Type: Spontaneous
  Country: US (occurrence: None)
  Receive Date: 20131115
  Receipt Date: 20131115
  Transmission Date: 20140711
  Serious: Yes (Hospitalization, Other)
  Sender: FDA-Public Use
  Company Number: 13-04657

PATIENT
  Age: 12 Year
  Sex: Female

DRUGS (1)
  1. ALBUTEROL SULFATE [Suspect]

REACTIONS (1)
  - Loss of consciousness [None]
